FAERS Safety Report 8221864-X (Version None)
Quarter: 2012Q1

REPORT INFORMATION
  Report Type: 
  Country: None (occurrence: None)
  Receive Date: 20120320
  Receipt Date: 20120305
  Transmission Date: 20120608
  Serious: Yes (Hospitalization)
  Sender: FDA-Public Use
  Company Number: ES-WATSON-2012-04455

PATIENT
  Age: 65 Year
  Sex: Female

DRUGS (2)
  1. ADENOSINE [Suspect]
     Indication: TACHYCARDIA
  2. ATENOLOL [Suspect]
     Indication: SUPRAVENTRICULAR TACHYCARDIA
     Dosage: 50 MG, DAILY
     Route: 065

REACTIONS (2)
  - DRUG INTERACTION [None]
  - BRONCHOSPASM [None]
